FAERS Safety Report 13665947 (Version 2)
Quarter: 2017Q3

REPORT INFORMATION
  Report Type: Report from Study
  Country: US (occurrence: US)
  Receive Date: 20170619
  Receipt Date: 20170829
  Transmission Date: 20171127
  Serious: Yes (Hospitalization, Other)
  Sender: FDA-Public Use
  Company Number: US-REGENERON PHARMACEUTICALS, INC.-2017-17068

PATIENT

DRUGS (2)
  1. EYLEA [Suspect]
     Active Substance: AFLIBERCEPT
     Dosage: LEFT EYE, EVERY 3 MONTHS
     Route: 031
     Dates: start: 20141101, end: 20150522
  2. EYLEA [Suspect]
     Active Substance: AFLIBERCEPT
     Indication: RETINAL VEIN OCCLUSION
     Dosage: LEFT EYE, EVERY 3 MONTHS, FIRST INJECTION
     Route: 031
     Dates: start: 20140703, end: 20140703

REACTIONS (7)
  - Stent placement [Recovered/Resolved]
  - Stent placement [Unknown]
  - Gamma radiation therapy to brain [Unknown]
  - Cholecystectomy [Unknown]
  - Myocardial infarction [Not Recovered/Not Resolved]
  - Adverse event [Unknown]
  - Drug ineffective [Unknown]

NARRATIVE: CASE EVENT DATE: 20140703
